FAERS Safety Report 5463460-3 (Version None)
Quarter: 2007Q3

REPORT INFORMATION
  Report Type: 
  Country: None (occurrence: None)
  Receive Date: 20070920
  Receipt Date: 20070910
  Transmission Date: 20080115
  Serious: Yes (Hospitalization, Other)
  Sender: FDA-Public Use
  Company Number: IE-PFIZER INC-2007044197

PATIENT
  Sex: Female

DRUGS (7)
  1. LYRICA [Suspect]
     Indication: NEURALGIA
     Route: 048
  2. ALL OTHER THERAPEUTIC PRODUCTS [Concomitant]
  3. MICARDIS [Concomitant]
  4. LIPITOR [Concomitant]
  5. ZOTON [Concomitant]
  6. ZIMOVANE [Concomitant]
  7. ASPIRIN [Concomitant]

REACTIONS (4)
  - COGNITIVE DISORDER [None]
  - DISORIENTATION [None]
  - ENCEPHALOPATHY [None]
  - TRANSIENT ISCHAEMIC ATTACK [None]
